FAERS Safety Report 10171049 (Version 1)
Quarter: 2014Q2

REPORT INFORMATION
  Report Type: Spontaneous
  Country: US (occurrence: None)
  Receive Date: 20140512
  Receipt Date: 20140512
  Transmission Date: 20141212
  Serious: Yes (Hospitalization)
  Sender: FDA-Public Use
  Company Number: BTG00119

PATIENT
  Age: 16 Year
  Sex: Female

DRUGS (4)
  1. VORAXAZE [Suspect]
     Indication: TOXICITY TO VARIOUS AGENTS
     Dosage: 2000 UNITS
     Dates: start: 20130130
  2. METHOTREXATE (METHOTREXATE SODIUM) [Suspect]
     Indication: OSTEOSARCOMA
     Dates: start: 20140128, end: 20140128
  3. MILRINONE [Concomitant]
  4. CARVEDILOL [Concomitant]

REACTIONS (2)
  - Blood creatinine increased [None]
  - Drug effect delayed [None]
